FAERS Safety Report 8603687-2 (Version None)
Quarter: 2012Q3

REPORT INFORMATION
  Report Type: 
  Country: None (occurrence: None)
  Receive Date: 20120817
  Receipt Date: 20120814
  Transmission Date: 20120928
  Serious: Yes (Hospitalization)
  Sender: FDA-Public Use
  Company Number: US-ROCHE-1097690

PATIENT
  Sex: Male
  Weight: 69.2 kg

DRUGS (8)
  1. ZOFRAN [Concomitant]
     Indication: NAUSEA
     Route: 048
     Dates: start: 20111116
  2. SENNA [Concomitant]
     Indication: CONSTIPATION
     Route: 048
     Dates: start: 20120522
  3. ULTRAM [Concomitant]
     Indication: PAIN
     Route: 048
     Dates: start: 20120515
  4. VISMODEGIB [Suspect]
     Indication: NEOPLASM MALIGNANT
     Dosage: DATE OF LAST DOSE OF 150 MG PRIOR TO SAE 01/AUG/2012
     Route: 048
     Dates: start: 20120731
  5. LISINOPRIL [Concomitant]
     Indication: BLOOD PRESSURE
     Route: 048
     Dates: start: 20111116
  6. MIRALAX [Concomitant]
     Indication: CONSTIPATION
     Route: 048
     Dates: start: 20120515
  7. DOCUSATE [Concomitant]
     Indication: CONSTIPATION
     Route: 048
     Dates: start: 20120522
  8. NOVOLOG [Concomitant]
     Indication: DIABETES MELLITUS
     Dosage: DRUG REPORTED AS NOVOLOG 70/30, DOSE 25-27 UNITS
     Route: 058
     Dates: start: 20111116

REACTIONS (2)
  - BLOOD BILIRUBIN INCREASED [None]
  - HYPONATRAEMIA [None]
